FAERS Safety Report 13485897 (Version 3)
Quarter: 2017Q3

REPORT INFORMATION
  Report Type: Spontaneous
  Country: KR (occurrence: KR)
  Receive Date: 20170426
  Receipt Date: 20170714
  Transmission Date: 20171127
  Serious: Yes (Hospitalization, Other)
  Sender: FDA-Public Use
  Company Number: KR-009507513-1704KOR011936

PATIENT
  Age: 80 Year
  Sex: Male
  Weight: 56.1 kg

DRUGS (69)
  1. ADRIAMYCIN [Concomitant]
     Active Substance: DOXORUBICIN HYDROCHLORIDE
     Dosage: 66.7 MG, ONCE CYCLE 3
     Route: 042
     Dates: start: 20160701, end: 20160707
  2. METHOTREXATE. [Concomitant]
     Active Substance: METHOTREXATE
     Indication: CHEMOTHERAPY
     Dosage: 15 MG, ONCE, CYCLE 1, STRENGTH: 50 MG/2ML
     Route: 042
     Dates: start: 20160506, end: 20160506
  3. MABTHERA [Concomitant]
     Active Substance: RITUXIMAB
     Indication: CHEMOTHERAPY
     Dosage: 700 MG, ONCE, CYCLE 1
     Route: 042
     Dates: start: 20160506, end: 20160506
  4. MABTHERA [Concomitant]
     Active Substance: RITUXIMAB
     Dosage: 700 MG, ONCE, CYCLE 4
     Route: 042
     Dates: start: 20160728, end: 20160728
  5. VINCRISTINE SULFATE. [Concomitant]
     Active Substance: VINCRISTINE SULFATE
     Dosage: 1.6 MG, ONCE, CYCLE 4
     Route: 042
     Dates: start: 20160728, end: 20160728
  6. SOLONDO [Concomitant]
     Active Substance: PREDNISOLONE
     Dosage: 20 TABLETS, QD
     Route: 048
     Dates: start: 20160922, end: 20160922
  7. NEULASTA [Concomitant]
     Active Substance: PEGFILGRASTIM
     Dosage: 6 MG, ONCE
     Route: 058
     Dates: start: 20160702, end: 20160702
  8. MUTERAN [Concomitant]
     Active Substance: ACETYLCYSTEINE
     Dosage: 3 CAPSULES (200 MG), BID
     Route: 048
     Dates: start: 20160630, end: 20160701
  9. EMEND (FOSAPREPITANT DIMEGLUMINE) [Suspect]
     Active Substance: FOSAPREPITANT DIMEGLUMINE
     Dosage: 150 MG, ONCE
     Route: 042
     Dates: start: 20160602, end: 20160602
  10. ADRIAMYCIN [Concomitant]
     Active Substance: DOXORUBICIN HYDROCHLORIDE
     Indication: CHEMOTHERAPY
     Dosage: 64.8 MG, ONCE, CYCLE 1
     Route: 042
     Dates: start: 20160506, end: 20160506
  11. ENDOXAN [Concomitant]
     Active Substance: CYCLOPHOSPHAMIDE
     Dosage: 850 MG, ONCE, CYCLE 2
     Route: 042
     Dates: start: 20160602, end: 20160602
  12. VINCRISTINE SULFATE. [Concomitant]
     Active Substance: VINCRISTINE SULFATE
     Dosage: 1.6 MG, ONCE, CYCLE 2
     Route: 042
     Dates: start: 20160602, end: 20160602
  13. ALOXI [Concomitant]
     Active Substance: PALONOSETRON HYDROCHLORIDE
     Dosage: 0.25 MG, ONCE
     Route: 042
     Dates: start: 20160602, end: 20160602
  14. NEULASTA [Concomitant]
     Active Substance: PEGFILGRASTIM
     Dosage: 6 MG, ONCE
     Route: 058
     Dates: start: 20160829, end: 20160829
  15. NEULASTA [Concomitant]
     Active Substance: PEGFILGRASTIM
     Dosage: 6 MG, ONCE
     Route: 058
     Dates: start: 20160923, end: 20160923
  16. PROSCAR [Concomitant]
     Active Substance: FINASTERIDE
     Indication: BENIGN PROSTATIC HYPERPLASIA
     Dosage: 1 TABLET (5MG),QD
     Route: 048
  17. DENOGAN [Concomitant]
     Active Substance: PROPACETAMOL HYDROCHLORIDE
     Indication: PROPHYLAXIS
     Dosage: 2 G, QD
     Route: 042
     Dates: start: 20160504, end: 20160505
  18. PANTOLINE TABLETS [Concomitant]
     Dosage: 1 TABLET (20 MG), QD
     Route: 048
     Dates: start: 20160701, end: 20160705
  19. ENDOXAN [Concomitant]
     Active Substance: CYCLOPHOSPHAMIDE
     Dosage: 850 MG, ONCE, CYCLE 3
     Route: 042
     Dates: start: 20160701, end: 20160701
  20. ENDOXAN [Concomitant]
     Active Substance: CYCLOPHOSPHAMIDE
     Dosage: 850 MG, ONCE, CYCLE 4
     Route: 042
     Dates: start: 20160728, end: 20160728
  21. METHOTREXATE. [Concomitant]
     Active Substance: METHOTREXATE
     Dosage: 15 MG, ONCE, CYCLE 2, STRENGTH: 50 MG/2ML
     Route: 042
     Dates: start: 20160602, end: 20160602
  22. VINCRISTINE SULFATE. [Concomitant]
     Active Substance: VINCRISTINE SULFATE
     Dosage: 1.3 MG, ONCE, CYCLE 6
     Route: 042
     Dates: start: 20160922, end: 20160922
  23. SOLONDO [Concomitant]
     Active Substance: PREDNISOLONE
     Indication: ANTIEMETIC SUPPORTIVE CARE
     Dosage: 20 TABLETS, QD
     Route: 048
     Dates: start: 20160506, end: 20160508
  24. ALOXI [Concomitant]
     Active Substance: PALONOSETRON HYDROCHLORIDE
     Dosage: 0.25 MG, ONCE
     Route: 042
     Dates: start: 20160728, end: 20160728
  25. NEULASTA [Concomitant]
     Active Substance: PEGFILGRASTIM
     Dosage: 6 MG, ONCE
     Route: 058
     Dates: start: 20160603, end: 20160603
  26. MUTERAN [Concomitant]
     Active Substance: ACETYLCYSTEINE
     Dosage: 3 CAPSULES (200 MG), BID
     Route: 048
     Dates: start: 20160827, end: 20160827
  27. PANTOLINE TABLETS [Concomitant]
     Dosage: 1 TABLET (20 MG), QD
     Route: 048
     Dates: start: 20160922, end: 20160926
  28. EMEND (FOSAPREPITANT DIMEGLUMINE) [Suspect]
     Active Substance: FOSAPREPITANT DIMEGLUMINE
     Dosage: 150 MG, ONCE
     Route: 042
     Dates: start: 20160728, end: 20160728
  29. EMEND (FOSAPREPITANT DIMEGLUMINE) [Suspect]
     Active Substance: FOSAPREPITANT DIMEGLUMINE
     Dosage: 150 MG, ONCE
     Route: 042
     Dates: start: 20160922, end: 20160922
  30. ADRIAMYCIN [Concomitant]
     Active Substance: DOXORUBICIN HYDROCHLORIDE
     Dosage: 48 MG, ONCE CYCLE 5
     Route: 042
     Dates: start: 20160828, end: 20160828
  31. ENDOXAN [Concomitant]
     Active Substance: CYCLOPHOSPHAMIDE
     Indication: CHEMOTHERAPY
     Dosage: 970 MG, ONCE, CYCLE 1
     Route: 042
     Dates: start: 20160506, end: 20160506
  32. ENDOXAN [Concomitant]
     Active Substance: CYCLOPHOSPHAMIDE
     Dosage: 720MG, ONCE, CYCLE 5
     Route: 042
     Dates: start: 20160828, end: 20160828
  33. VINCRISTINE SULFATE. [Concomitant]
     Active Substance: VINCRISTINE SULFATE
     Dosage: 1.3 MG, ONCE, CYCLE 5
     Route: 042
     Dates: start: 20160828, end: 20160828
  34. ALOXI [Concomitant]
     Active Substance: PALONOSETRON HYDROCHLORIDE
     Indication: ANTIEMETIC SUPPORTIVE CARE
     Dosage: 0.25 MG, ONCE
     Route: 042
     Dates: start: 20160506, end: 20160506
  35. ALOXI [Concomitant]
     Active Substance: PALONOSETRON HYDROCHLORIDE
     Dosage: 0.25 MG, ONCE
     Route: 042
     Dates: start: 20160828, end: 20160828
  36. TERAZOSIN HYDROCHLORIDE. [Concomitant]
     Active Substance: TERAZOSIN HYDROCHLORIDE
     Indication: BENIGN PROSTATIC HYPERPLASIA
     Dosage: 1 TABLET (2MG),QD
     Route: 048
  37. ADRIAMYCIN [Concomitant]
     Active Substance: DOXORUBICIN HYDROCHLORIDE
     Dosage: 48 MG, ONCE CYCLE 6
     Route: 042
     Dates: start: 20160922, end: 20160922
  38. ENDOXAN [Concomitant]
     Active Substance: CYCLOPHOSPHAMIDE
     Dosage: 720MG, ONCE, CYCLE 6
     Route: 042
     Dates: start: 20160922, end: 20160922
  39. VINCRISTINE SULFATE. [Concomitant]
     Active Substance: VINCRISTINE SULFATE
     Indication: CHEMOTHERAPY
     Dosage: 1.8 MG, ONCE, CYCLE 1
     Dates: start: 20160506, end: 20160506
  40. SOLONDO [Concomitant]
     Active Substance: PREDNISOLONE
     Dosage: 20 TABLETS, QD
     Route: 048
     Dates: start: 20160828, end: 20160828
  41. CEPHRADINE [Concomitant]
     Active Substance: CEPHRADINE
     Indication: PROPHYLAXIS
     Dosage: 1 CAPSULE, QID
     Route: 048
     Dates: start: 20160504, end: 20160507
  42. MUTERAN [Concomitant]
     Active Substance: ACETYLCYSTEINE
     Dosage: 3 CAPSULES (200 MG), BID
     Route: 048
     Dates: start: 20160728, end: 20160728
  43. ADRIAMYCIN [Concomitant]
     Active Substance: DOXORUBICIN HYDROCHLORIDE
     Dosage: 66.7 MG, ONCE CYCLE 4
     Route: 042
     Dates: start: 20160728, end: 20160728
  44. METHOTREXATE. [Concomitant]
     Active Substance: METHOTREXATE
     Dosage: 15 MG, ONCE, CYCLE 3, STRENGTH: 50 MG/2ML
     Route: 042
     Dates: start: 20160701, end: 20160701
  45. METHOTREXATE. [Concomitant]
     Active Substance: METHOTREXATE
     Dosage: 15 MG, ONCE, CYCLE 4, STRENGTH: 50 MG/2ML
     Route: 042
     Dates: start: 20160729, end: 20160729
  46. SOLONDO [Concomitant]
     Active Substance: PREDNISOLONE
     Dosage: 20 TABLETS, QD
     Route: 048
     Dates: start: 20160728, end: 20160730
  47. NEULASTA [Concomitant]
     Active Substance: PEGFILGRASTIM
     Dosage: 6 MG, ONCE
     Route: 058
     Dates: start: 20160729, end: 20160729
  48. MAXIPIME [Concomitant]
     Active Substance: CEFEPIME HYDROCHLORIDE
     Dosage: 2 G, BID
     Route: 042
     Dates: start: 20160805, end: 20160814
  49. MUTERAN [Concomitant]
     Active Substance: ACETYLCYSTEINE
     Indication: PROPHYLAXIS
     Dosage: 3 CAPSULES (200 MG), BID
     Route: 048
     Dates: start: 20160502, end: 20160502
  50. EMEND (FOSAPREPITANT DIMEGLUMINE) [Suspect]
     Active Substance: FOSAPREPITANT DIMEGLUMINE
     Indication: PROPHYLAXIS OF NAUSEA AND VOMITING
     Dosage: 150 MG, ONCE
     Route: 042
     Dates: start: 20160506, end: 20160506
  51. EMEND (FOSAPREPITANT DIMEGLUMINE) [Suspect]
     Active Substance: FOSAPREPITANT DIMEGLUMINE
     Dosage: 150 MG, ONCE
     Route: 042
     Dates: start: 20160701, end: 20160701
  52. ADRIAMYCIN [Concomitant]
     Active Substance: DOXORUBICIN HYDROCHLORIDE
     Dosage: 66.7 MG, ONCE CYCLE 2
     Route: 042
     Dates: start: 20160602, end: 20160602
  53. MABTHERA [Concomitant]
     Active Substance: RITUXIMAB
     Dosage: 700 MG, ONCE, CYCLE 3
     Route: 042
     Dates: start: 20160701, end: 20160701
  54. MABTHERA [Concomitant]
     Active Substance: RITUXIMAB
     Dosage: 600 MG, ONCE, CYCLE 6
     Route: 042
     Dates: start: 20160922, end: 20160922
  55. SOLONDO [Concomitant]
     Active Substance: PREDNISOLONE
     Dosage: 20 TABLETS, QD
     Route: 048
     Dates: start: 20160701, end: 20160703
  56. ALOXI [Concomitant]
     Active Substance: PALONOSETRON HYDROCHLORIDE
     Dosage: 0.25 MG, ONCE
     Route: 042
     Dates: start: 20160922, end: 20160922
  57. MAXIPIME [Concomitant]
     Active Substance: CEFEPIME HYDROCHLORIDE
     Indication: PROPHYLAXIS
     Dosage: 2 G, BID
     Route: 042
     Dates: start: 20160515, end: 20160518
  58. DENOGAN [Concomitant]
     Active Substance: PROPACETAMOL HYDROCHLORIDE
     Dosage: 2 G, QD
     Route: 042
     Dates: start: 20160808, end: 20160808
  59. PANTOLINE TABLETS [Concomitant]
     Dosage: 1 TABLET (20 MG), QD
     Route: 048
     Dates: start: 20160728, end: 20160814
  60. EMEND (FOSAPREPITANT DIMEGLUMINE) [Suspect]
     Active Substance: FOSAPREPITANT DIMEGLUMINE
     Dosage: 150 MG, ONCE
     Route: 042
     Dates: start: 20160828, end: 20160828
  61. MABTHERA [Concomitant]
     Active Substance: RITUXIMAB
     Dosage: 700 MG, ONCE, CYCLE 2
     Route: 042
     Dates: start: 20160602, end: 20160602
  62. MABTHERA [Concomitant]
     Active Substance: RITUXIMAB
     Dosage: 600 MG, ONCE, CYCLE 5
     Route: 042
     Dates: start: 20160828, end: 20160828
  63. VINCRISTINE SULFATE. [Concomitant]
     Active Substance: VINCRISTINE SULFATE
     Dosage: 1.6 MG, ONCE, CYCLE 3
     Route: 042
     Dates: start: 20160701, end: 20160701
  64. SOLONDO [Concomitant]
     Active Substance: PREDNISOLONE
     Dosage: 20 TABLETS, QD
     Route: 048
     Dates: start: 20160602, end: 20160604
  65. ALOXI [Concomitant]
     Active Substance: PALONOSETRON HYDROCHLORIDE
     Dosage: 0.25 MG, ONCE
     Route: 042
     Dates: start: 20160701, end: 20160701
  66. NEULASTA [Concomitant]
     Active Substance: PEGFILGRASTIM
     Indication: PROPHYLAXIS
     Dosage: 6 MG, ONCE
     Route: 058
     Dates: start: 20160507, end: 20160507
  67. PANTOLINE TABLETS [Concomitant]
     Indication: PROPHYLAXIS
     Dosage: 1 TABLET (20 MG), QD
     Route: 048
     Dates: start: 20160506, end: 20160510
  68. PANTOLINE TABLETS [Concomitant]
     Dosage: 1 TABLET (20 MG), QD
     Route: 048
     Dates: start: 20160602, end: 20160606
  69. PANTOLINE TABLETS [Concomitant]
     Dosage: 1 TABLET (20 MG), QD
     Route: 048
     Dates: start: 20160827, end: 20160901

REACTIONS (5)
  - Febrile neutropenia [Recovered/Resolved]
  - Oral candidiasis [Recovered/Resolved]
  - Febrile neutropenia [Recovered/Resolved]
  - Thrombocytopenia [Recovered/Resolved]
  - Decreased appetite [Recovered/Resolved]

NARRATIVE: CASE EVENT DATE: 20160515
